FAERS Safety Report 6193601-4 (Version None)
Quarter: 2009Q2

REPORT INFORMATION
  Report Type: 
  Country: None (occurrence: None)
  Receive Date: 20090514
  Receipt Date: 20090430
  Transmission Date: 20091009
  Serious: Yes (Death, Life-Threatening, Hospitalization, Other)
  Sender: FDA-Public Use
  Company Number: 2009001314

PATIENT
  Age: 76 Year
  Sex: Female

DRUGS (11)
  1. TARCEVA [Suspect]
     Indication: LUNG NEOPLASM MALIGNANT
     Dosage: (150 MG, QD), ORAL
     Route: 048
     Dates: start: 20090223, end: 20090301
  2. ATENOLOL [Concomitant]
  3. ASPIRIN [Concomitant]
  4. METOCLOPRAMIDE (METOCLORPAMIDE) [Concomitant]
  5. OMEPRAZOLE [Concomitant]
  6. RAMIPRIL [Concomitant]
  7. TRAMADOL HCL [Concomitant]
  8. PANTOPRAZOLE SODIUM [Concomitant]
  9. SIMVASTATIN [Concomitant]
  10. CLOPIDOGREL [Concomitant]
  11. SPIRONOLACTONE [Concomitant]

REACTIONS (2)
  - ACUTE MYOCARDIAL INFARCTION [None]
  - CEREBROVASCULAR ACCIDENT [None]
